FAERS Safety Report 6355669-1 (Version None)
Quarter: 2009Q3

REPORT INFORMATION
  Report Type: 
  Country: None (occurrence: None)
  Receive Date: 20090910
  Receipt Date: 20090828
  Transmission Date: 20100115
  Serious: Yes (Disabling, Other)
  Sender: FDA-Public Use
  Company Number: 2009AP003499

PATIENT
  Age: 62 Year
  Sex: Male

DRUGS (1)
  1. AMLODIPINE BESYLATE [Suspect]
     Indication: HYPERTENSION
     Dosage: 5 MG; PO
     Route: 048
     Dates: start: 20090227, end: 20090325

REACTIONS (2)
  - ECZEMA NUMMULAR [None]
  - RASH PRURITIC [None]
